FAERS Safety Report 5809962-9 (Version None)
Quarter: 2008Q3

REPORT INFORMATION
  Report Type: 
  Country: None (occurrence: None)
  Receive Date: 20080714
  Receipt Date: 20080714
  Transmission Date: 20090109
  Serious: No
  Sender: FDA-Public Use
  Company Number: None

PATIENT
  Age: 57 Year
  Sex: Female
  Weight: 68.9467 kg

DRUGS (2)
  1. CIPRO [Suspect]
     Indication: URINARY TRACT INFECTION
     Dosage: 500 MG 2/DAY X 5 DAYS PO
     Route: 048
     Dates: start: 20070620, end: 20070625
  2. PROQUIN XR [Suspect]
     Indication: URINARY TRACT INFECTION
     Dosage: 500 MG 2/DAY X 5 DAYS PO
     Route: 048
     Dates: start: 20061115, end: 20061115

REACTIONS (4)
  - MUSCLE RUPTURE [None]
  - MUSCLE STRAIN [None]
  - TENDON RUPTURE [None]
  - TENDONITIS [None]
